FAERS Safety Report 19067121 (Version 1)
Quarter: 2021Q1

REPORT INFORMATION
  Report Type: Spontaneous
  Country: CR (occurrence: CR)
  Receive Date: 20210329
  Receipt Date: 20210329
  Transmission Date: 20210420
  Serious: Yes (Hospitalization)
  Sender: FDA-Public Use
  Company Number: CR-CELLTRION INC.-2021CR003968

PATIENT

DRUGS (1)
  1. TRUXIMA [Suspect]
     Active Substance: RITUXIMAB-ABBS
     Indication: DERMATOMYOSITIS
     Dosage: UNK
     Route: 065
     Dates: start: 202101

REACTIONS (3)
  - Off label use [Unknown]
  - Cardiac disorder [Unknown]
  - Drug effective for unapproved indication [Unknown]
